FAERS Safety Report 18416325 (Version 2)
Quarter: 2020Q4

REPORT INFORMATION
  Report Type: Report from Study
  Country: BR (occurrence: BR)
  Receive Date: 20201022
  Receipt Date: 20201030
  Transmission Date: 20210114
  Serious: Yes (Other)
  Sender: FDA-Public Use
  Company Number: BR-PFIZER INC-2020406691

PATIENT
  Age: 35 Year
  Sex: Female

DRUGS (3)
  1. POTASSIUM CHLORIDE. [Suspect]
     Active Substance: POTASSIUM CHLORIDE
     Indication: ECTOPIC PREGNANCY
     Dosage: UNK (2 MEQ/ML)
  2. METHOTREXATE SODIUM. [Suspect]
     Active Substance: METHOTREXATE SODIUM
     Dosage: 50 MG/M2, SINGLE
     Route: 030
  3. METHOTREXATE SODIUM. [Suspect]
     Active Substance: METHOTREXATE SODIUM
     Indication: ECTOPIC PREGNANCY
     Dosage: 1 MG/KG ( (ULTRASOUND-GUIDED LOCAL INJECTION))

REACTIONS (2)
  - Cervix haemorrhage uterine [Unknown]
  - Drug effective for unapproved indication [Unknown]
